FAERS Safety Report 5474040-8 (Version None)
Quarter: 2007Q4

REPORT INFORMATION
  Report Type: 
  Country: None (occurrence: None)
  Receive Date: 20071002
  Receipt Date: 20070924
  Transmission Date: 20080405
  Serious: Yes (Life-Threatening, Hospitalization, Other)
  Sender: FDA-Public Use
  Company Number: PHEH2007US10724

PATIENT
  Age: 77 Year
  Sex: Female

DRUGS (1)
  1. LOTREL [Suspect]
     Route: 048
     Dates: start: 20070202

REACTIONS (7)
  - ASTHENIA [None]
  - DYSPNOEA [None]
  - FEELING ABNORMAL [None]
  - GAIT DISTURBANCE [None]
  - LABORATORY TEST ABNORMAL [None]
  - RENAL ARTERY STENT PLACEMENT [None]
  - RENAL FAILURE [None]
